FAERS Safety Report 11815975 (Version 3)
Quarter: 2016Q3

REPORT INFORMATION
  Report Type: Spontaneous
  Country: JP (occurrence: JP)
  Receive Date: 20151209
  Receipt Date: 20160810
  Transmission Date: 20161109
  Serious: Yes (Hospitalization, Other)
  Sender: FDA-Public Use
  Company Number: JP-BRISTOL-MYERS SQUIBB COMPANY-BMS-2015-084957

PATIENT
  Age: 51 Year
  Sex: Male

DRUGS (1)
  1. ABILIFY [Suspect]
     Active Substance: ARIPIPRAZOLE
     Indication: SCHIZOPHRENIA
     Dosage: 3 MG, UNK
     Route: 048

REACTIONS (3)
  - Type 2 diabetes mellitus [Recovering/Resolving]
  - Ketosis [Recovering/Resolving]
  - Pulmonary embolism [Unknown]
